FAERS Safety Report 18695147 (Version 1)
Quarter: 2021Q1

REPORT INFORMATION
  Report Type: Spontaneous
  Country: CA (occurrence: CA)
  Receive Date: 20210104
  Receipt Date: 20210104
  Transmission Date: 20210419
  Serious: Yes (Life-Threatening)
  Sender: FDA-Public Use
  Company Number: CA-ROCHE-2743062

PATIENT
  Age: 53 Year
  Sex: Male

DRUGS (10)
  1. FLOMAX [Concomitant]
     Active Substance: TAMSULOSIN HYDROCHLORIDE
  2. GRAVOL [Concomitant]
     Active Substance: DIMENHYDRINATE
  3. METOCLOPRAMIDE. [Concomitant]
     Active Substance: METOCLOPRAMIDE
  4. DILAUDID [Concomitant]
     Active Substance: HYDROMORPHONE HYDROCHLORIDE
  5. FRAGMIN [Concomitant]
     Active Substance: DALTEPARIN SODIUM
     Dosage: SOLUTION INTRAVENOUS
  6. PREVACID [Concomitant]
     Active Substance: LANSOPRAZOLE
  7. CALCIUM [Concomitant]
     Active Substance: CALCIUM
  8. ALTEPLASE. [Suspect]
     Active Substance: ALTEPLASE
     Indication: DEEP VEIN THROMBOSIS
     Dosage: 2.0 DAYS THERAPY DURATION
     Route: 013
  9. HEPARIN SODIUM. [Concomitant]
     Active Substance: HEPARIN SODIUM
     Dosage: SOLUTION INTRAVENOUS
  10. LASIX [Concomitant]
     Active Substance: FUROSEMIDE

REACTIONS (7)
  - Shock haemorrhagic [Recovered/Resolved]
  - Vena cava filter insertion [Recovered/Resolved]
  - Presyncope [Recovered/Resolved]
  - Retroperitoneal haematoma [Recovered/Resolved]
  - Haemoglobin decreased [Recovered/Resolved]
  - Colectomy [Recovered/Resolved]
  - Hypotension [Recovered/Resolved]
